FAERS Safety Report 19610030 (Version 1)
Quarter: 2021Q3

REPORT INFORMATION
  Report Type: Spontaneous
  Country: PL (occurrence: PL)
  Receive Date: 20210726
  Receipt Date: 20210726
  Transmission Date: 20211014
  Serious: Yes (Hospitalization, Other)
  Sender: FDA-Public Use
  Company Number: PL-AMGEN-POLSP2021113611

PATIENT
  Age: 54 Year
  Sex: Female

DRUGS (10)
  1. GLUCOPHAGE [Concomitant]
     Active Substance: METFORMIN HYDROCHLORIDE
     Indication: TYPE 2 DIABETES MELLITUS
     Dosage: 750 MG, QD
     Route: 048
     Dates: start: 202007, end: 202010
  2. QTERN [DAPAGLIFLOZIN PROPANEDIOL MONOHYDRATE;SAXAGLIPTIN HYDROCHLORIDE [Concomitant]
     Indication: TYPE 2 DIABETES MELLITUS
     Dosage: 1 DF, QD
     Route: 048
     Dates: start: 202010
  3. DIAPREL [Suspect]
     Active Substance: GLICLAZIDE
     Indication: TYPE 2 DIABETES MELLITUS
     Dosage: 60 MG, QD
     Route: 048
     Dates: start: 202007, end: 202010
  4. VIVACOR [CARVEDILOL] [Concomitant]
     Indication: CARDIAC FAILURE
     Dosage: 12.5 MG, BID
     Dates: start: 20200723, end: 20210706
  5. NOLIPREL FORTE [Suspect]
     Active Substance: INDAPAMIDE\PERINDOPRIL ARGININE
     Indication: HYPERTENSION
     Dosage: 1 DF, QD
     Route: 048
     Dates: end: 2021
  6. VIVACOR [CARVEDILOL] [Concomitant]
     Dosage: 37.5 MG, QD
     Dates: start: 20210707
  7. IVABRADINE [Suspect]
     Active Substance: IVABRADINE
     Dosage: 7.5 MILLIGRAM, QD
     Route: 048
     Dates: start: 20200816, end: 20210702
  8. IVABRADINE [Suspect]
     Active Substance: IVABRADINE
     Indication: CARDIAC FAILURE
     Dosage: 5 MG, QD
     Route: 048
     Dates: start: 20200723, end: 20200814
  9. BETALOC [METOPROLOL SUCCINATE] [Concomitant]
     Active Substance: METOPROLOL SUCCINATE
     Indication: TYPE 2 DIABETES MELLITUS
     Dosage: UNK
     Route: 048
     Dates: start: 1996, end: 2021
  10. GLUCOPHAGE [Concomitant]
     Active Substance: METFORMIN HYDROCHLORIDE
     Dosage: 1000 MILLIGRAM, TID
     Route: 048
     Dates: start: 202010

REACTIONS (7)
  - Visual impairment [Recovered/Resolved]
  - Macular oedema [Not Recovered/Not Resolved]
  - Cardiac failure [Recovered/Resolved]
  - Myocarditis [Recovered/Resolved]
  - Product use issue [Recovered/Resolved]
  - Type 2 diabetes mellitus [Not Recovered/Not Resolved]
  - Retinal disorder [Not Recovered/Not Resolved]

NARRATIVE: CASE EVENT DATE: 202007
